FAERS Safety Report 8407355-1 (Version None)
Quarter: 2012Q2

REPORT INFORMATION
  Report Type: 
  Country: None (occurrence: None)
  Receive Date: 20120604
  Receipt Date: 20120525
  Transmission Date: 20120825
  Serious: Yes (Hospitalization)
  Sender: FDA-Public Use
  Company Number: BR-ASTRAZENECA-2012SE34268

PATIENT
  Age: 75 Year
  Sex: Female
  Weight: 46 kg

DRUGS (12)
  1. NEXIUM [Interacting]
     Indication: HIATUS HERNIA
     Route: 048
     Dates: end: 20120501
  2. RABEPRAZOLE SODIUM [Concomitant]
     Indication: HIATUS HERNIA
  3. NEXIUM [Interacting]
     Route: 048
  4. RABEPRAZOLE SODIUM [Concomitant]
     Indication: GASTRITIS
  5. NEXIUM [Suspect]
     Indication: GASTROOESOPHAGEAL REFLUX DISEASE
     Route: 048
     Dates: end: 20120501
  6. OMEPRAZOLE [Concomitant]
     Indication: GASTRITIS
  7. OMEPRAZOLE [Concomitant]
     Indication: GASTROOESOPHAGEAL REFLUX DISEASE
  8. NEXIUM [Interacting]
     Route: 048
  9. CRESTOR [Interacting]
     Indication: BLOOD CHOLESTEROL INCREASED
     Route: 048
  10. ALPRAZOLAM [Interacting]
     Indication: DEPRESSION
     Route: 048
  11. OMEPRAZOLE [Concomitant]
     Indication: HIATUS HERNIA
  12. RABEPRAZOLE SODIUM [Concomitant]
     Indication: GASTROOESOPHAGEAL REFLUX DISEASE

REACTIONS (6)
  - INTERVERTEBRAL DISC PROTRUSION [None]
  - DRUG INTERACTION [None]
  - VOMITING [None]
  - INSOMNIA [None]
  - WEIGHT DECREASED [None]
  - PAIN IN EXTREMITY [None]
